FAERS Safety Report 8611751-7 (Version None)
Quarter: 2012Q3

REPORT INFORMATION
  Report Type: 
  Country: None (occurrence: None)
  Receive Date: 20120822
  Receipt Date: 20120807
  Transmission Date: 20120928
  Serious: Yes (Death, Other)
  Sender: FDA-Public Use
  Company Number: JP-VERTEX PHARMACEUTICAL INC.-AE-2012-008227

PATIENT

DRUGS (47)
  1. TELAVIC [Suspect]
     Dosage: 500 MG, UNK
     Route: 048
     Dates: start: 20120516, end: 20120517
  2. RIBAVIRIN [Concomitant]
     Indication: HEPATITIS C
     Route: 048
     Dates: start: 20120224, end: 20120425
  3. PEGINTERFERON ALFA-2B [Concomitant]
     Route: 058
     Dates: end: 20120530
  4. SEISHOKU [Concomitant]
     Dosage: UNK
     Route: 042
     Dates: start: 20120703, end: 20120703
  5. VITAMEDIN                          /00176001/ [Concomitant]
     Dosage: UNK
     Dates: start: 20120609, end: 20120619
  6. VITAMEDIN                          /00176001/ [Concomitant]
     Dosage: UNK
     Dates: start: 20120623, end: 20120703
  7. FUTHAN [Concomitant]
     Dosage: UNK
     Dates: start: 20120705, end: 20120705
  8. PEGINTERFERON ALFA-2B [Concomitant]
     Indication: HEPATITIS C
     Route: 058
     Dates: start: 20120224
  9. SEISHOKU [Concomitant]
     Dosage: UNK
     Dates: start: 20120705, end: 20120705
  10. SOLITAX-H [Concomitant]
     Dosage: UNK
     Dates: start: 20120703, end: 20120703
  11. KAYTWO N [Concomitant]
     Dosage: UNK
     Dates: start: 20120608, end: 20120613
  12. SODIUM CHLORIDE [Concomitant]
     Dosage: UNK
     Dates: start: 20120614, end: 20120618
  13. SODIUM CHLORIDE [Concomitant]
     Dosage: UNK
     Dates: start: 20120705, end: 20120705
  14. SEISHOKU [Concomitant]
     Dosage: UNK
     Dates: start: 20120628, end: 20120702
  15. HEPAFLUSH [Concomitant]
     Dosage: UNK
     Dates: start: 20120703, end: 20120705
  16. PENTAGIN                           /00052102/ [Concomitant]
     Dosage: UNK
     Dates: start: 20120704, end: 20120704
  17. SEISHOKU [Concomitant]
     Dosage: 10 ML, UNK
     Route: 042
     Dates: start: 20120523, end: 20120525
  18. CANDESARTAN CILEXETIL [Concomitant]
     Dosage: 4 MG, UNK
     Route: 048
  19. SOLITAX-H [Concomitant]
     Dosage: 500 ML, UNK
     Route: 042
     Dates: start: 20120608, end: 20120608
  20. NEOPHAGEN                          /00467204/ [Concomitant]
     Dosage: 40 ML, UNK
     Dates: start: 20120609, end: 20120613
  21. TELAVIC [Suspect]
     Dosage: 1000 MG, UNK
     Route: 048
     Dates: start: 20120514, end: 20120516
  22. RIBAVIRIN [Concomitant]
     Dosage: 200 MG, UNK
     Route: 048
     Dates: start: 20120521, end: 20120601
  23. SOLITAX-H [Concomitant]
     Dosage: UNK
     Dates: start: 20120619, end: 20120619
  24. SODIUM CHLORIDE [Concomitant]
     Dosage: UNK
     Dates: start: 20120619, end: 20120619
  25. SOLDACTONE [Concomitant]
     Dosage: UNK
     Dates: start: 20120705, end: 20120705
  26. POTASSIUM [Concomitant]
     Dosage: UNK
     Route: 042
     Dates: start: 20120704, end: 20120704
  27. ALBUMIN [Concomitant]
     Dosage: 150 ML, UNK
     Route: 042
     Dates: start: 20120703, end: 20120703
  28. MORIHEPAMIN [Concomitant]
     Dosage: 500 ML, UNK
     Route: 042
     Dates: start: 20120608, end: 20120613
  29. NEOPHAGEN                          /00467204/ [Concomitant]
     Dosage: 80 ML, UNK
     Route: 042
     Dates: start: 20120614, end: 20120703
  30. LASIX [Concomitant]
     Dosage: UNK
     Dates: start: 20120628, end: 20120705
  31. HICALIQ [Concomitant]
     Dosage: UNK
     Dates: start: 20120704, end: 20120705
  32. SEISHOKU [Concomitant]
     Dosage: 10 ML, UNK
     Route: 042
     Dates: start: 20120418, end: 20120425
  33. SOLITAX-H [Concomitant]
     Dosage: 1000 ML, UNK
     Dates: start: 20120609, end: 20120611
  34. NEOPHAGEN                          /00467204/ [Concomitant]
     Dosage: 40 ML, UNK
     Dates: start: 20120704, end: 20120705
  35. SODIUM CHLORIDE [Concomitant]
     Dosage: UNK
     Dates: start: 20120703, end: 20120703
  36. VITAJECT [Concomitant]
     Dosage: UNK
     Dates: start: 20120704, end: 20120705
  37. MINERALIN [Concomitant]
     Dosage: UNK
     Dates: start: 20120704, end: 20120704
  38. TELAVIC [Suspect]
     Indication: HEPATITIS C
     Route: 048
     Dates: start: 20120224, end: 20120513
  39. RIBAVIRIN [Concomitant]
     Dosage: 400 MG, UNK
     Route: 048
     Dates: start: 20120426, end: 20120520
  40. TPN ELECTROLYTES IN PLASTIC CONTAINER [Concomitant]
     Dosage: 1000 ML, UNK
     Route: 042
     Dates: start: 20120419, end: 20120425
  41. SEISHOKU [Concomitant]
     Dosage: 10 ML, UNK
     Route: 042
     Dates: start: 20120608, end: 20120613
  42. ALBUMIN [Concomitant]
     Dosage: 50 ML, UNK
     Route: 042
     Dates: start: 20120523, end: 20120525
  43. SOLDACTONE [Concomitant]
     Dosage: UNK
     Dates: start: 20120703, end: 20120704
  44. FLURBIPROFEN [Concomitant]
     Dosage: UNK
     Dates: start: 20120704, end: 20120704
  45. NORVASC [Concomitant]
     Dosage: 5 MG, UNK
     Route: 048
  46. LACTEC G [Concomitant]
     Dosage: 500 ML, UNK
     Dates: start: 20120619, end: 20120702
  47. GLUCOSE [Concomitant]
     Dosage: UNK
     Dates: start: 20120705, end: 20120705

REACTIONS (4)
  - DECREASED APPETITE [None]
  - ACUTE HEPATIC FAILURE [None]
  - RETINOPATHY [None]
  - HAEMOGLOBIN DECREASED [None]
